FAERS Safety Report 11189664 (Version 6)
Quarter: 2018Q4

REPORT INFORMATION
  Report Type: Spontaneous
  Country: US (occurrence: US)
  Receive Date: 20150615
  Receipt Date: 20181211
  Transmission Date: 20190204
  Serious: Yes (Hospitalization, Other)
  Sender: FDA-Public Use
  Company Number: US-DSJP-DSU-2015-110327

PATIENT
  Age: 64 Year
  Sex: Female
  Weight: 81.63 kg

DRUGS (6)
  1. BENICAR HCT [Suspect]
     Active Substance: HYDROCHLOROTHIAZIDE\OLMESARTAN MEDOXOMIL
     Indication: HYPERTENSION
     Dosage: 40-25 MG, UNK
     Dates: start: 201105, end: 201205
  2. BENICAR [Suspect]
     Active Substance: OLMESARTAN MEDOXOMIL
     Indication: HYPERTENSION
     Dosage: 40 MG, UNK
     Dates: start: 201205, end: 201209
  3. IBUPROFEN. [Concomitant]
     Active Substance: IBUPROFEN
     Indication: PRODUCT USED FOR UNKNOWN INDICATION
     Dosage: UNK
     Dates: start: 2000, end: 201204
  4. BENICAR [Suspect]
     Active Substance: OLMESARTAN MEDOXOMIL
     Dosage: 20 MG, QD
     Dates: start: 201209, end: 20130130
  5. BENICAR [Suspect]
     Active Substance: OLMESARTAN MEDOXOMIL
     Dosage: UNK
     Dates: end: 20130303
  6. VICODIN [Concomitant]
     Active Substance: ACETAMINOPHEN\HYDROCODONE BITARTRATE
     Indication: PRODUCT USED FOR UNKNOWN INDICATION
     Dosage: 10/325 MG, QD
     Dates: start: 2004

REACTIONS (19)
  - Acute kidney injury [Not Recovered/Not Resolved]
  - Oedema peripheral [Unknown]
  - Eating disorder [Unknown]
  - Sprue-like enteropathy [Recovering/Resolving]
  - Alopecia [Unknown]
  - Hypovitaminosis [Unknown]
  - Arthralgia [Unknown]
  - Muscle atrophy [Unknown]
  - Irritable bowel syndrome [Unknown]
  - Hypophagia [Unknown]
  - Failure to thrive [Unknown]
  - Diverticulitis [Unknown]
  - Gallbladder disorder [Recovered/Resolved]
  - Depression [Unknown]
  - Hypoalbuminaemia [Unknown]
  - Hyperuricaemia [Unknown]
  - Osteopenia [Unknown]
  - Coeliac disease [Unknown]
  - Anaemia [Unknown]

NARRATIVE: CASE EVENT DATE: 201203
